FAERS Safety Report 13758202 (Version 4)
Quarter: 2017Q3

REPORT INFORMATION
  Report Type: Spontaneous
  Country: US (occurrence: US)
  Receive Date: 20170717
  Receipt Date: 20170928
  Transmission Date: 20171127
  Serious: Yes (Other)
  Sender: FDA-Public Use
  Company Number: US-GLAXOSMITHKLINE-US2017GSK109556

PATIENT
  Age: 70 Year
  Sex: Male

DRUGS (6)
  1. SPIRIVA [Concomitant]
     Active Substance: TIOTROPIUM BROMIDE MONOHYDRATE
  2. SINGULAIR [Concomitant]
     Active Substance: MONTELUKAST SODIUM
  3. ADVAIR DISKUS [Suspect]
     Active Substance: FLUTICASONE PROPIONATE\SALMETEROL XINAFOATE
     Indication: ASTHMA
     Dosage: 1 PUFF(S), BID
     Route: 055
     Dates: start: 2007
  4. ADVAIR DISKUS [Suspect]
     Active Substance: FLUTICASONE PROPIONATE\SALMETEROL XINAFOATE
     Dosage: UNK
  5. APIXABAN [Concomitant]
     Active Substance: APIXABAN
  6. ALBUTEROL. [Concomitant]
     Active Substance: ALBUTEROL

REACTIONS (13)
  - Drug ineffective [Not Recovered/Not Resolved]
  - Back pain [Unknown]
  - Arthralgia [Unknown]
  - Candida infection [Recovered/Resolved]
  - Underdose [Unknown]
  - Wrong technique in product usage process [Unknown]
  - Pain in extremity [Unknown]
  - Surgery [Unknown]
  - Oropharyngeal pain [Unknown]
  - Renal transplant [Unknown]
  - Dysphagia [Unknown]
  - Oral pain [Unknown]
  - Product quality issue [Unknown]

NARRATIVE: CASE EVENT DATE: 2013
